FAERS Safety Report 7487643-6 (Version None)
Quarter: 2011Q2

REPORT INFORMATION
  Report Type: 
  Country: None (occurrence: None)
  Receive Date: 20110518
  Receipt Date: 20080507
  Transmission Date: 20111010
  Serious: Yes (Death, Hospitalization)
  Sender: FDA-Public Use
  Company Number: US-BAYER-200822289NA

PATIENT
  Age: 74 Year
  Sex: Female
  Weight: 53 kg

DRUGS (19)
  1. MAVIK [Concomitant]
     Dosage: 2MG
     Route: 048
  2. NIPRIDE [Concomitant]
     Dosage: 50MG/250ML
     Route: 042
     Dates: start: 20050427, end: 20050427
  3. VANCOMYCIN [Concomitant]
     Dosage: 1 GRAM
     Route: 042
     Dates: start: 20050427, end: 20050427
  4. BENADRYL ALLERGY [DIPHENHYDRAMINE HYDROCHLORIDE] [Concomitant]
     Dosage: 25MG
     Route: 042
     Dates: start: 20050427, end: 20050427
  5. LASIX [Concomitant]
     Dosage: 20MG
     Route: 042
     Dates: start: 20050427, end: 20050427
  6. NITROGLYCERIN [Concomitant]
     Dosage: 50MG/250ML
     Route: 042
     Dates: start: 20050427, end: 20050427
  7. DOBUTAMINE HYDROCHLORIDE [Concomitant]
     Dosage: 250MG/250ML
     Route: 042
     Dates: start: 20050427, end: 20050427
  8. PLASMA [Concomitant]
     Dosage: UNK
     Dates: start: 20050427
  9. TRASYLOL [Suspect]
     Indication: AORTIC VALVE REPLACEMENT
     Dosage: TEST DOSE 1ML, ILLEGIBLE LOADING DOSE FOLLOWED BY ILLEGIBLE CONTINUOUS INFUSION
     Route: 042
     Dates: start: 20050427, end: 20050427
  10. DOPAMINE HCL [Concomitant]
     Dosage: 400/250ML
     Route: 042
     Dates: start: 20050427, end: 20050427
  11. NITROLINGUAL [Concomitant]
     Indication: CHEST PAIN
     Dosage: ONE SPRAY
     Route: 048
  12. COUMADIN [Concomitant]
     Dosage: 2.5
     Route: 048
  13. PROTAMINE SULFATE [Concomitant]
     Dosage: 70MG
     Route: 042
     Dates: start: 20050427, end: 20050427
  14. RED BLOOD CELLS, CONCENTRATED [Concomitant]
     Dosage: UNK
     Dates: start: 20050427
  15. IMDUR [Concomitant]
     Dosage: 60MG
     Route: 048
  16. LANOXIN [Concomitant]
     Dosage: 0.25
     Route: 048
  17. PLAQUENIL [Concomitant]
     Dosage: 200MCG
     Route: 048
  18. PRIMACOR [Concomitant]
     Dosage: 20/100ML
     Route: 042
     Dates: start: 20050427, end: 20050427
  19. HEPARIN [Concomitant]
     Dosage: 39000
     Route: 042
     Dates: start: 20050427, end: 20050427

REACTIONS (5)
  - PAIN [None]
  - INJURY [None]
  - ADVERSE EVENT [None]
  - RENAL FAILURE ACUTE [None]
  - EMOTIONAL DISTRESS [None]
